FAERS Safety Report 7236570-8 (Version None)
Quarter: 2011Q1

REPORT INFORMATION
  Report Type: 
  Country: None (occurrence: None)
  Receive Date: 20110120
  Receipt Date: 20110117
  Transmission Date: 20110831
  Serious: Yes (Death, Life-Threatening, Hospitalization, Other)
  Sender: FDA-Public Use
  Company Number: CA-ROXANE LABORATORIES, INC.-2011-RO-00071RO

PATIENT
  Age: 19 Year
  Sex: Female

DRUGS (9)
  1. OLANZAPINE [Suspect]
     Indication: PSYCHOTIC DISORDER
     Dosage: 10 MG
  2. VENLAFAXINE [Suspect]
     Dosage: 225 MG
  3. DIPHENHYDRAMINE [Suspect]
  4. RISPERDONE [Suspect]
     Indication: PSYCHOTIC DISORDER
     Dosage: 5 MG
  5. RISPERDONE [Suspect]
     Dosage: 2 MG
  6. LOXAPINE [Suspect]
  7. NORTRIPTYLINE [Suspect]
     Dosage: 100 MG
  8. OLANZAPINE [Suspect]
     Dosage: 5 MG
  9. RISPERDONE [Suspect]
     Dosage: 3 MG

REACTIONS (8)
  - WEIGHT INCREASED [None]
  - TREATMENT NONCOMPLIANCE [None]
  - EMBOLISM ARTERIAL [None]
  - HYPERPROLACTINAEMIA [None]
  - SUICIDE ATTEMPT [None]
  - DRUG INEFFECTIVE [None]
  - MAJOR DEPRESSION [None]
  - AMENORRHOEA [None]
